FAERS Safety Report 9440957 (Version 2)
Quarter: 2013Q3

REPORT INFORMATION
  Report Type: Spontaneous
  Country: US (occurrence: None)
  Receive Date: 20130801
  Receipt Date: 20130815
  Transmission Date: 20140515
  Serious: Yes (Other)
  Sender: FDA-Public Use
  Company Number: SYM-2013-07664

PATIENT
  Age: 52 Year
  Sex: Female

DRUGS (6)
  1. WELLBUTRIN [Suspect]
     Indication: DEPRESSION
     Dates: start: 1993
  2. EFFEXOR ( VENLAFAXINE HYDROCHLORIDE) ( VENLAFAXINE HYDROCHLORIDE) [Suspect]
     Indication: PRODUCT USED FOR UNKNOWN INDICATION
     Dates: start: 1993
  3. ZOLOFT ( SERTRALINE HYDROCHLORIDE) ( SERTRALINE HYDROCHLORIDE) [Suspect]
     Indication: DEPRESSION
     Dates: start: 1993
  4. PROZAC ( FLUOXETINE HYDROCHLORIDE) ( FLUOXETINE HYDROCHLORIDE) [Suspect]
     Indication: DEPRESSION
     Dates: start: 1993
  5. VICODIN ( VICODIN) ( PARACETAMOL, HYDROCODONE BITARTRATE) [Suspect]
     Indication: PAIN
  6. PHENTERMINE ( PHENTERMINE) ( PHENTERMINE) [Concomitant]

REACTIONS (8)
  - Diabetes mellitus [None]
  - Insomnia [None]
  - Weight increased [None]
  - Hypertension [None]
  - Blood cholesterol abnormal [None]
  - Drug ineffective [None]
  - Crying [None]
  - Nightmare [None]
